FAERS Safety Report 19061090 (Version 3)
Quarter: 2021Q4

REPORT INFORMATION
  Report Type: Report from Study
  Country: US (occurrence: US)
  Receive Date: 20210325
  Receipt Date: 20211214
  Transmission Date: 20220304
  Serious: No
  Sender: FDA-Public Use
  Company Number: US-SUNOVION-2021SUN000897

PATIENT
  Age: 71 Year
  Sex: Male

DRUGS (3)
  1. KYNMOBI [Suspect]
     Active Substance: APOMORPHINE HYDROCHLORIDE
     Dosage: 10 MG
     Route: 060
     Dates: start: 20210303
  2. KYNMOBI [Suspect]
     Active Substance: APOMORPHINE HYDROCHLORIDE
     Dosage: UNK
     Route: 060
  3. KYNMOBI [Suspect]
     Active Substance: APOMORPHINE HYDROCHLORIDE
     Dosage: 30 MG
     Route: 060
     Dates: start: 20210310

REACTIONS (3)
  - Muscle spasms [Unknown]
  - Muscle tightness [Unknown]
  - Drug ineffective [Unknown]

NARRATIVE: CASE EVENT DATE: 20210310
